FAERS Safety Report 12281444 (Version 3)
Quarter: 2016Q2

REPORT INFORMATION
  Report Type: Report from Study
  Country: RU (occurrence: RU)
  Receive Date: 20160419
  Receipt Date: 20160606
  Transmission Date: 20160815
  Serious: Yes (Hospitalization)
  Sender: FDA-Public Use
  Company Number: RU-UCBSA-2016012316

PATIENT
  Age: 60 Year
  Sex: Female
  Weight: 70.4 kg

DRUGS (10)
  1. OMEPRAZOLE. [Concomitant]
     Active Substance: OMEPRAZOLE
     Indication: RHEUMATOID ARTHRITIS
     Dosage: 20 MG, ONCE DAILY (QD)
     Route: 048
     Dates: start: 201510
  2. CERTOLIZUMAB PEGOL [Suspect]
     Active Substance: CERTOLIZUMAB PEGOL
     Indication: RHEUMATOID ARTHRITIS
     Dosage: 200 MG, EV 2 WEEKS(QOW), 4 DOSES RECEIVED
     Route: 058
     Dates: start: 20160303, end: 20160317
  3. BLINDED PLACEBO [Suspect]
     Active Substance: INVESTIGATIONAL PRODUCT
     Indication: RHEUMATOID ARTHRITIS
     Dosage: UNK
  4. METHOTREXATE [Concomitant]
     Active Substance: METHOTREXATE
     Indication: RHEUMATOID ARTHRITIS
     Dosage: 15 MG, WEEKLY (QW)
     Route: 030
     Dates: start: 20151127
  5. AMPICILLIN [Concomitant]
     Active Substance: AMPICILLIN
     Indication: NASOPHARYNGITIS
     Dosage: 500 MG, 4X/DAY (QID)
     Route: 048
     Dates: start: 20160326, end: 20160328
  6. AMOXICLAV [Concomitant]
     Active Substance: AMOXICILLIN\CLAVULANIC ACID
     Indication: NASOPHARYNGITIS
     Dosage: 1 DF, 2X/DAY (BID); 875MG/125 MG
     Route: 048
     Dates: start: 20160329, end: 20160331
  7. AMOXICLAV [Concomitant]
     Active Substance: AMOXICILLIN\CLAVULANIC ACID
     Dosage: UNK
     Route: 042
     Dates: start: 20160401
  8. FOLIC ACID. [Concomitant]
     Active Substance: FOLIC ACID
     Indication: RHEUMATOID ARTHRITIS
     Dosage: 9 MG, WEEKLY (QW)
     Route: 048
     Dates: start: 20151016
  9. BLINDED BIMEKIZUMAB [Suspect]
     Active Substance: BIMEKIZUMAB
     Indication: RHEUMATOID ARTHRITIS
     Dosage: UNK
  10. NIMESULIDE [Concomitant]
     Active Substance: NIMESULIDE
     Indication: RHEUMATOID ARTHRITIS
     Dosage: 200 MG, ONCE DAILY (QD)
     Route: 048
     Dates: start: 201510

REACTIONS (1)
  - Pneumonia [Recovered/Resolved]

NARRATIVE: CASE EVENT DATE: 20160401
